FAERS Safety Report 12265087 (Version 1)
Quarter: 2016Q2

REPORT INFORMATION
  Report Type: Spontaneous
  Country: DE (occurrence: DE)
  Receive Date: 20160413
  Receipt Date: 20160413
  Transmission Date: 20160815
  Serious: Yes (Hospitalization)
  Sender: FDA-Public Use
  Company Number: DE-FRESENIUS KABI-FK201601872

PATIENT
  Age: 74 Year
  Sex: Male

DRUGS (1)
  1. CISPLATIN (MANUFACTURER UNKNOWN) [Suspect]
     Active Substance: CISPLATIN
     Indication: GALLBLADDER NEOPLASM
     Route: 042

REACTIONS (6)
  - Dehydration [Unknown]
  - Renal impairment [Unknown]
  - Hypokalaemia [Unknown]
  - Pneumonia klebsiella [Unknown]
  - Nausea [Unknown]
  - Vomiting [Unknown]
